FAERS Safety Report 24564975 (Version 1)
Quarter: 2024Q4

REPORT INFORMATION
  Report Type: Spontaneous
  Country: US (occurrence: US)
  Receive Date: 20241030
  Receipt Date: 20241030
  Transmission Date: 20250115
  Serious: No
  Sender: TEVA
  Company Number: US-TEVA-VS-3255695

PATIENT
  Age: 61 Year
  Sex: Male

DRUGS (3)
  1. TESTOSTERONE [Suspect]
     Active Substance: TESTOSTERONE
     Indication: Product used for unknown indication
     Route: 065
  2. ORGOVYX [Suspect]
     Active Substance: RELUGOLIX
     Indication: Prostate cancer
     Route: 048
  3. ORGOVYX [Suspect]
     Active Substance: RELUGOLIX
     Indication: Prostate cancer
     Route: 048
     Dates: start: 20240628

REACTIONS (8)
  - Quality of life decreased [Unknown]
  - Pain [Unknown]
  - Blood glucose fluctuation [Unknown]
  - Groin pain [Unknown]
  - Fatigue [Unknown]
  - Pollakiuria [Unknown]
  - Hot flush [Unknown]
  - Headache [Unknown]
